FAERS Safety Report 5106751-8 (Version None)
Quarter: 2006Q3

REPORT INFORMATION
  Report Type: 
  Country: None (occurrence: None)
  Receive Date: 20060731
  Receipt Date: 20051110
  Transmission Date: 20061208
  Serious: Yes (Other)
  Sender: FDA-Public Use
  Company Number: US-JNJFOC-20050806523

PATIENT
  Age: 33 Year
  Sex: Male
  Weight: 114.3065 kg

DRUGS (3)
  1. RISPERDAL [Suspect]
     Indication: SCHIZOPHRENIA
     Dosage: SEE IMAGE
     Route: 048
     Dates: start: 20021001
  2. RISPERDAL [Suspect]
     Indication: SCHIZOPHRENIA
     Dosage: SEE IMAGE
     Route: 048
     Dates: start: 20050801
  3. ABILIFY [Concomitant]

REACTIONS (4)
  - RASH [None]
  - RESTLESSNESS [None]
  - TREMOR [None]
  - WEIGHT INCREASED [None]
